FAERS Safety Report 22090182 (Version 1)
Quarter: 2023Q1

REPORT INFORMATION
  Report Type: Spontaneous
  Country: US (occurrence: None)
  Receive Date: 20230313
  Receipt Date: 20230313
  Transmission Date: 20230418
  Serious: Yes (Disabling)
  Sender: FDA-Public Use
  Company Number: None

PATIENT
  Age: 23 Year
  Sex: Female
  Weight: 96.75 kg

DRUGS (2)
  1. LAMOTRIGINE [Suspect]
     Active Substance: LAMOTRIGINE
     Indication: Bipolar II disorder
  2. LAMOTRIGINE [Suspect]
     Active Substance: LAMOTRIGINE
     Indication: Hypomania

REACTIONS (36)
  - Withdrawal syndrome [None]
  - Menstrual disorder [None]
  - Panic disorder [None]
  - Anxiety [None]
  - Fatigue [None]
  - Emotional disorder [None]
  - Hypoaesthesia [None]
  - Apathy [None]
  - Arthralgia [None]
  - Meibomian gland dysfunction [None]
  - Skin discolouration [None]
  - Amblyopia [None]
  - Obsessive-compulsive disorder [None]
  - Dermatillomania [None]
  - Insomnia [None]
  - Abdominal distension [None]
  - Constipation [None]
  - Weight increased [None]
  - Disturbance in attention [None]
  - Suicidal ideation [None]
  - Mental disorder [None]
  - Drug ineffective [None]
  - Palpitations [None]
  - Nausea [None]
  - Vomiting [None]
  - Decreased appetite [None]
  - Malaise [None]
  - Anhedonia [None]
  - Muscle spasms [None]
  - Depression [None]
  - Mood swings [None]
  - Alopecia [None]
  - Hair texture abnormal [None]
  - Tremor [None]
  - Increased appetite [None]
  - Antidepressant discontinuation syndrome [None]

NARRATIVE: CASE EVENT DATE: 20170401
